FAERS Safety Report 23311837 (Version 1)
Quarter: 2023Q4

REPORT INFORMATION
  Report Type: Spontaneous
  Country: US (occurrence: None)
  Receive Date: 20231218
  Receipt Date: 20231218
  Transmission Date: 20240109
  Serious: Yes (Other)
  Sender: FDA-Public Use
  Company Number: None

PATIENT
  Age: 47 Year
  Sex: Female
  Weight: 75.6 kg

DRUGS (6)
  1. TIZANIDINE [Suspect]
     Active Substance: TIZANIDINE
     Indication: Endodontic procedure
     Dosage: 10 TABLETS EVERY 8 HOURAS ORAL
     Route: 048
     Dates: start: 20231114, end: 20231117
  2. Preston [Concomitant]
  3. GABAPENTIN [Concomitant]
  4. ZOMIG [Concomitant]
     Active Substance: ZOLMITRIPTAN
  5. ZONEGRAN [Concomitant]
     Active Substance: ZONISAMIDE
  6. NAPROXEN [Concomitant]
     Active Substance: NAPROXEN

REACTIONS (5)
  - Abnormal dreams [None]
  - Hallucination [None]
  - Depression [None]
  - Feeling of despair [None]
  - Suicidal ideation [None]

NARRATIVE: CASE EVENT DATE: 20231115
